FAERS Safety Report 10245975 (Version 2)
Quarter: 2014Q2

REPORT INFORMATION
  Report Type: Report from Study
  Country: US (occurrence: US)
  Receive Date: 20140619
  Receipt Date: 20140619
  Transmission Date: 20141212
  Serious: No
  Sender: FDA-Public Use
  Company Number: PHEH2013US026065

PATIENT
  Sex: Male
  Weight: 192 kg

DRUGS (8)
  1. TASIGNA [Suspect]
     Indication: CHRONIC MYELOID LEUKAEMIA
     Dosage: 300 MG, BID
     Route: 048
     Dates: start: 20131219
  2. ASTELIN [Concomitant]
     Dosage: UNK UKN, UNK
  3. DIOVAN [Concomitant]
     Dosage: UNK UKN, UNK
  4. FLUTICASONE [Concomitant]
     Dosage: UNK UKN, UNK
  5. GLUCOSAMINE [Concomitant]
     Dosage: UNK UKN, UNK
  6. OMEGA 3 [Concomitant]
     Dosage: UNK UKN, UNK
  7. SYNTHROID [Concomitant]
     Dosage: UNK UKN, UNK
  8. VYTORIN [Concomitant]
     Dosage: UNK UKN, UNK

REACTIONS (1)
  - Rash pruritic [Unknown]
